FAERS Safety Report 8399028-9 (Version None)
Quarter: 2012Q2

REPORT INFORMATION
  Report Type: 
  Country: None (occurrence: None)
  Receive Date: 20120531
  Receipt Date: 20120522
  Transmission Date: 20120825
  Serious: Yes (Other)
  Sender: FDA-Public Use
  Company Number: US-ELI_LILLY_AND_COMPANY-US201205008011

PATIENT
  Sex: Male

DRUGS (2)
  1. CISPLATIN [Concomitant]
  2. ALIMTA [Suspect]

REACTIONS (1)
  - METASTASES TO CENTRAL NERVOUS SYSTEM [None]
